FAERS Safety Report 8164341-7 (Version None)
Quarter: 2012Q1

REPORT INFORMATION
  Report Type: 
  Country: None (occurrence: None)
  Receive Date: 20120224
  Receipt Date: 20120214
  Transmission Date: 20120608
  Serious: Yes (Hospitalization)
  Sender: FDA-Public Use
  Company Number: JP-ELI_LILLY_AND_COMPANY-JP201201003258

PATIENT
  Sex: Male
  Weight: 64 kg

DRUGS (7)
  1. PARAPLATIN [Concomitant]
     Indication: LUNG ADENOCARCINOMA STAGE IV
     Dosage: 610 MG, OTHER
     Route: 042
     Dates: start: 20110704, end: 20111108
  2. ACTOS [Concomitant]
     Dosage: UNK
     Route: 048
  3. CANDESARTAN CILEXETIL [Concomitant]
     Dosage: UNK
     Route: 048
  4. BASEN [Concomitant]
     Dosage: UNK
     Route: 048
  5. SITAGLIPTIN PHOSPHATE [Concomitant]
     Dosage: UNK
     Route: 048
  6. ALIMTA [Suspect]
     Indication: LUNG ADENOCARCINOMA STAGE IV
     Dosage: 912.5 MG, OTHER
     Route: 042
     Dates: start: 20110704, end: 20120110
  7. AMARYL [Concomitant]
     Dosage: UNK
     Route: 048

REACTIONS (1)
  - LUNG DISORDER [None]
